FAERS Safety Report 9801798 (Version 2)
Quarter: 2014Q3

REPORT INFORMATION
  Report Type: Spontaneous
  Country: DE (occurrence: DE)
  Receive Date: 20140107
  Receipt Date: 20140703
  Transmission Date: 20150326
  Serious: Yes (Other)
  Sender: FDA-Public Use
  Company Number: DE-GLAXOSMITHKLINE-D0081932A

PATIENT
  Sex: Female
  Weight: 56 kg

DRUGS (2)
  1. MALARONE [Suspect]
     Active Substance: ATOVAQUONE\PROGUANIL HYDROCHLORIDE
     Indication: MALARIA PROPHYLAXIS
     Route: 048
  2. MALARONE [Concomitant]
     Active Substance: ATOVAQUONE\PROGUANIL HYDROCHLORIDE
     Indication: MALARIA PROPHYLAXIS
     Route: 048

REACTIONS (3)
  - Superinfection fungal [Recovered/Resolved]
  - Stomatitis [Recovered/Resolved]
  - Glossitis [Recovered/Resolved]
